FAERS Safety Report 4518317-9 (Version None)
Quarter: 2004Q4

REPORT INFORMATION
  Report Type: 
  Country: None (occurrence: None)
  Receive Date: 20041203
  Receipt Date: 20041105
  Transmission Date: 20050328
  Serious: Yes (Death)
  Sender: FDA-Public Use
  Company Number: FR-ABBOTT-04P-056-0279959-00

PATIENT
  Sex: Male

DRUGS (27)
  1. DEPAKOTE [Suspect]
     Indication: DRUG USE FOR UNKNOWN INDICATION
     Dosage: IMPORTANT DOSE REGIMEN/1000 MG TO 2000 MG
     Route: 048
     Dates: start: 20040401, end: 20041004
  2. DEPAKOTE [Suspect]
     Route: 048
     Dates: start: 20041005, end: 20041012
  3. DEPAKOTE [Suspect]
     Route: 048
  4. CLOZAPINE [Suspect]
     Indication: BIPOLAR DISORDER
     Dosage: IMPORTANT DOSE REGIMEN
     Route: 048
     Dates: start: 20040616, end: 20041012
  5. LOXAPINE SUCCINATE [Concomitant]
     Indication: BIPOLAR DISORDER
     Route: 048
     Dates: start: 20040301, end: 20041012
  6. AMITRIPTYLINE HYDROCHLORIDE [Concomitant]
     Indication: BIPOLAR DISORDER
     Route: 048
     Dates: start: 20040813, end: 20041012
  7. TRIHEXYPHENIDYL HYDROCHLORIDE [Concomitant]
     Indication: DRUG USE FOR UNKNOWN INDICATION
     Route: 048
     Dates: start: 20040706, end: 20041015
  8. CLONAZEPAM [Concomitant]
     Indication: BIPOLAR DISORDER
     Route: 048
     Dates: start: 20040922, end: 20041011
  9. CLONAZEPAM [Concomitant]
     Route: 048
     Dates: start: 20041012, end: 20041015
  10. ZUCLOPENTHIXOL HYDROCHLORIDE [Concomitant]
     Indication: BIPOLAR DISORDER
     Route: 048
     Dates: start: 20040701, end: 20041004
  11. ZUCLOPENTHIXOL HYDROCHLORIDE [Concomitant]
     Route: 048
     Dates: start: 20041005, end: 20041006
  12. VALPROMIDE [Concomitant]
     Indication: BIPOLAR DISORDER
  13. LITHIUM [Concomitant]
     Indication: BIPOLAR DISORDER
  14. HYDROXYZINE [Concomitant]
     Indication: BIPOLAR DISORDER
  15. PAROXETINE HCL [Concomitant]
     Indication: BIPOLAR DISORDER
  16. HALOPERIDOL [Concomitant]
     Indication: BIPOLAR DISORDER
  17. LEVOMEPROMAZINE [Concomitant]
     Indication: BIPOLAR DISORDER
  18. OLANZAPINE [Concomitant]
     Indication: BIPOLAR DISORDER
  19. ACEPROMAZINE [Concomitant]
     Indication: BIPOLAR DISORDER
  20. ACEPROMETAZINE [Concomitant]
     Indication: BIPOLAR DISORDER
  21. OXAZEPAM [Concomitant]
     Indication: BIPOLAR DISORDER
  22. CARBAMAZEPINE [Concomitant]
     Indication: BIPOLAR DISORDER
  23. AMISULPRIDE [Concomitant]
     Indication: BIPOLAR DISORDER
  24. ZUCLOPENTHIXOL [Concomitant]
     Indication: BIPOLAR DISORDER
  25. IMIPRAM TAB [Concomitant]
     Indication: BIPOLAR DISORDER
  26. CLORAZEPATE DIPOTASSIUM [Concomitant]
     Indication: BIPOLAR DISORDER
  27. DIAZEPAM [Concomitant]
     Indication: BIPOLAR DISORDER

REACTIONS (9)
  - ABDOMINAL DISTENSION [None]
  - BALANCE DISORDER [None]
  - CATATONIA [None]
  - DEPRESSION [None]
  - DYSPHAGIA [None]
  - GASTROINTESTINAL OBSTRUCTION [None]
  - OVERDOSE [None]
  - SEDATION [None]
  - SPEECH DISORDER [None]
